FAERS Safety Report 6488375-3 (Version None)
Quarter: 2009Q4

REPORT INFORMATION
  Report Type: 
  Country: None (occurrence: None)
  Receive Date: 20091210
  Receipt Date: 20090902
  Transmission Date: 20100525
  Serious: No
  Sender: FDA-Public Use
  Company Number: US-AMGEN-KDL362854

PATIENT
  Sex: Female

DRUGS (2)
  1. ENBREL [Suspect]
     Indication: RHEUMATOID ARTHRITIS
     Dates: start: 20060101
  2. ARAVA [Concomitant]
     Route: 048
     Dates: start: 20060101

REACTIONS (4)
  - AGEUSIA [None]
  - ANOSMIA [None]
  - DECREASED APPETITE [None]
  - INFECTION [None]
